FAERS Safety Report 8959462 (Version 1)
Quarter: 2012Q4

REPORT INFORMATION
  Report Type: 
  Country: ES (occurrence: ES)
  Receive Date: 20121212
  Receipt Date: 20121212
  Transmission Date: 20130627
  Serious: No
  Sender: FDA-Public Use
  Company Number: ES-SANOFI-AVENTIS-2012SA089004

PATIENT
  Age: 33 Year
  Sex: Female

DRUGS (1)
  1. ARAVA [Suspect]
     Indication: PSORIATIC ARTHRITIS
     Route: 048
     Dates: start: 201011, end: 20111004

REACTIONS (1)
  - Exposure during pregnancy [Unknown]
